FAERS Safety Report 24345809 (Version 1)
Quarter: 2024Q3

REPORT INFORMATION
  Report Type: Spontaneous
  Country: US (occurrence: US)
  Receive Date: 20240920
  Receipt Date: 20240920
  Transmission Date: 20241016
  Serious: No
  Sender: VIVUS
  Company Number: US-VIVUS LLC-2024V1000908

PATIENT
  Sex: Male
  Weight: 91 kg

DRUGS (1)
  1. QSYMIA [Suspect]
     Active Substance: PHENTERMINE HYDROCHLORIDE\TOPIRAMATE
     Indication: Weight decreased
     Route: 048

REACTIONS (2)
  - Product dose omission issue [Not Recovered/Not Resolved]
  - Dry mouth [Not Recovered/Not Resolved]
